FAERS Safety Report 9973882 (Version 1)
Quarter: 2014Q1

REPORT INFORMATION
  Report Type: Spontaneous
  Country: DE (occurrence: DE)
  Receive Date: 20140306
  Receipt Date: 20140306
  Transmission Date: 20141002
  Serious: Yes (Congenital Anomaly, Other)
  Sender: FDA-Public Use
  Company Number: DE-TEVA-465499GER

PATIENT
  Age: 1 Day
  Sex: Female

DRUGS (3)
  1. CITALOPRAM [Suspect]
     Route: 064
  2. FOLS?URE [Concomitant]
     Route: 064
  3. THYMIAN [Concomitant]
     Route: 064

REACTIONS (2)
  - Motor developmental delay [Unknown]
  - Dermoid cyst [Not Recovered/Not Resolved]
